FAERS Safety Report 9545921 (Version 1)
Quarter: 2013Q3

REPORT INFORMATION
  Report Type: Spontaneous
  Country: US (occurrence: US)
  Receive Date: 20130923
  Receipt Date: 20130923
  Transmission Date: 20140515
  Serious: Yes (Other)
  Sender: FDA-Public Use
  Company Number: US-ACTAVIS-2013-16230

PATIENT
  Age: 87 Year
  Sex: Male

DRUGS (3)
  1. OXALIPLATIN (ATLLC) [Suspect]
     Indication: OESOPHAGEAL SQUAMOUS CELL CARCINOMA STAGE IV
     Dosage: UNK
     Route: 042
  2. FOLINIC ACID [Concomitant]
     Indication: OESOPHAGEAL SQUAMOUS CELL CARCINOMA STAGE IV
     Dosage: UNK
     Route: 042
  3. FLUOROURACIL [Concomitant]
     Indication: OESOPHAGEAL SQUAMOUS CELL CARCINOMA STAGE IV
     Dosage: UNK
     Route: 042

REACTIONS (4)
  - Pleural effusion [Recovering/Resolving]
  - Pneumonitis [Recovering/Resolving]
  - Mediastinitis [Recovering/Resolving]
  - Infusion site extravasation [Recovering/Resolving]
